FAERS Safety Report 6066065-9 (Version None)
Quarter: 2009Q1

REPORT INFORMATION
  Report Type: 
  Country: None (occurrence: None)
  Receive Date: 20090205
  Receipt Date: 20090204
  Transmission Date: 20090719
  Serious: Yes (Hospitalization)
  Sender: FDA-Public Use
  Company Number: DE-WYE-H03559708

PATIENT
  Sex: Male
  Weight: 90 kg

DRUGS (11)
  1. PROGRAF [Suspect]
     Indication: PROPHYLAXIS AGAINST TRANSPLANT REJECTION
     Route: 048
     Dates: start: 20080116, end: 20080809
  2. URSODIOL [Concomitant]
     Indication: PROPHYLAXIS
     Route: 065
     Dates: start: 20080115
  3. BELOC ZOK [Concomitant]
     Indication: HYPERTENSION
     Route: 065
     Dates: start: 20080214
  4. ALDACTONE [Concomitant]
     Indication: ASCITES
     Route: 065
     Dates: start: 20080101
  5. RAPAMUNE [Suspect]
     Indication: PROPHYLAXIS AGAINST TRANSPLANT REJECTION
     Dosage: 1 MG-0-0
     Dates: start: 20080923
  6. ACTRAPID HUMAN [Concomitant]
     Indication: DIABETES MELLITUS
     Dosage: NOT PROVIDED
     Route: 058
     Dates: start: 20080201
  7. PANTOZOL [Concomitant]
     Indication: PROPHYLAXIS AGAINST GASTROINTESTINAL ULCER
     Route: 065
     Dates: start: 20080115
  8. CALCIMAGON [Concomitant]
     Indication: OSTEOPOROSIS PROPHYLAXIS
     Dosage: TWICE A DAY/DOSE NOT SPECIFIED
     Route: 065
     Dates: start: 20070704
  9. SANDIMMUNE [Suspect]
     Indication: PROPHYLAXIS AGAINST TRANSPLANT REJECTION
     Dosage: NOT PROVIDED
     Dates: start: 20080730, end: 20080929
  10. DECORTIN [Concomitant]
     Indication: PROPHYLAXIS AGAINST TRANSPLANT REJECTION
     Route: 065
     Dates: start: 20080115
  11. CELLCEPT [Suspect]
     Indication: PROPHYLAXIS AGAINST TRANSPLANT REJECTION
     Route: 065
     Dates: start: 20080115

REACTIONS (2)
  - ASCITES [None]
  - HEPATOTOXICITY [None]
